FAERS Safety Report 4603837-9 (Version None)
Quarter: 2005Q1

REPORT INFORMATION
  Report Type: 
  Country: None (occurrence: None)
  Receive Date: 20050308
  Receipt Date: 20050222
  Transmission Date: 20050727
  Serious: Yes (Hospitalization)
  Sender: FDA-Public Use
  Company Number: CLOF-10003

PATIENT
  Age: 12 Year
  Sex: Male
  Weight: 65 kg

DRUGS (7)
  1. CLOLAR [Suspect]
     Indication: ACUTE LYMPHOCYTIC LEUKAEMIA
     Dosage: 85 MG QD IV
     Route: 042
     Dates: start: 20050203, end: 20050206
  2. MONTELUKAST [Concomitant]
  3. FLUCONAZOLE [Concomitant]
  4. DAPSONE [Concomitant]
  5. VANCOMYCIN [Concomitant]
  6. ZOSYN [Concomitant]
  7. LEUKINE [Concomitant]

REACTIONS (6)
  - CHOLELITHIASIS [None]
  - HEPATOMEGALY [None]
  - HEPATOTOXICITY [None]
  - INFUSION RELATED REACTION [None]
  - NAUSEA [None]
  - VOMITING [None]
